FAERS Safety Report 7204560-7 (Version None)
Quarter: 2010Q4

REPORT INFORMATION
  Report Type: 
  Country: None (occurrence: None)
  Receive Date: 20101230
  Receipt Date: 20101221
  Transmission Date: 20110411
  Serious: Yes (Hospitalization, Other)
  Sender: FDA-Public Use
  Company Number: PHHO2010GB14571

PATIENT
  Age: 61 Year
  Sex: Male

DRUGS (3)
  1. DICLOFENAC [Suspect]
     Indication: PAIN
     Dosage: 75 MG, QD
     Route: 048
     Dates: end: 20100906
  2. MST [Concomitant]
  3. OMEPRAZOLE [Concomitant]

REACTIONS (20)
  - BLOOD ALBUMIN DECREASED [None]
  - BLOOD ALKALINE PHOSPHATASE INCREASED [None]
  - BLOOD CALCIUM DECREASED [None]
  - BLOOD CREATININE INCREASED [None]
  - BLOOD UREA INCREASED [None]
  - BLOOD URIC ACID INCREASED [None]
  - DEHYDRATION [None]
  - HAEMATOCRIT DECREASED [None]
  - HAEMOGLOBIN DECREASED [None]
  - MEAN PLATELET VOLUME ABNORMAL [None]
  - PANCYTOPENIA [None]
  - PLATELET COUNT DECREASED [None]
  - PROTHROMBIN LEVEL DECREASED [None]
  - RED BLOOD CELL COUNT DECREASED [None]
  - RED CELL DISTRIBUTION WIDTH INCREASED [None]
  - RENAL FAILURE [None]
  - RENAL IMPAIRMENT [None]
  - SYNCOPE [None]
  - TUMOUR LYSIS SYNDROME [None]
  - WHITE BLOOD CELL COUNT DECREASED [None]
